FAERS Safety Report 10436672 (Version 1)
Quarter: 2014Q3

REPORT INFORMATION
  Report Type: Spontaneous
  Country: US (occurrence: US)
  Receive Date: 20140908
  Receipt Date: 20140908
  Transmission Date: 20150326
  Serious: Yes (Hospitalization)
  Sender: FDA-Public Use
  Company Number: US-BRISTOL-MYERS SQUIBB COMPANY-20775979

PATIENT
  Age: 68 Year
  Sex: Female

DRUGS (4)
  1. TRAZODONE HYDROCHLORIDE. [Concomitant]
     Active Substance: TRAZODONE HYDROCHLORIDE
  2. ABILIFY [Suspect]
     Active Substance: ARIPIPRAZOLE
     Indication: SCHIZOPHRENIA
     Dosage: ADDITIONALY 2MG IS ALSO TAKEN
  3. MELATONIN [Concomitant]
     Active Substance: MELATONIN
  4. ABILIFY MAINTENA [Concomitant]
     Active Substance: ARIPIPRAZOLE

REACTIONS (3)
  - Pneumonia [Unknown]
  - Dysphagia [Unknown]
  - Insomnia [Unknown]
